FAERS Safety Report 5644476-0 (Version None)
Quarter: 2008Q1

REPORT INFORMATION
  Report Type: 
  Country: None (occurrence: None)
  Receive Date: 20080229
  Receipt Date: 20070115
  Transmission Date: 20080703
  Serious: No
  Sender: FDA-Public Use
  Company Number: A0635729A

PATIENT
  Sex: Female

DRUGS (2)
  1. VALTREX [Suspect]
     Indication: ANTIVIRAL PROPHYLAXIS
     Route: 048
     Dates: start: 20061201, end: 20070113
  2. ACYCLOVIR [Suspect]
     Indication: ANTIVIRAL PROPHYLAXIS
     Route: 065

REACTIONS (5)
  - GASTROINTESTINAL DISORDER [None]
  - MALAISE [None]
  - MUSCULOSKELETAL STIFFNESS [None]
  - PAIN [None]
  - SENSATION OF FOREIGN BODY [None]
